FAERS Safety Report 8925425 (Version 1)
Quarter: 2012Q4

REPORT INFORMATION
  Report Type: Spontaneous
  Country: US (occurrence: None)
  Receive Date: 20121126
  Receipt Date: 20121126
  Transmission Date: 20130627
  Serious: Yes (Other)
  Sender: FDA-Public Use
  Company Number: None

PATIENT
  Age: 39 Year
  Sex: Female
  Weight: 58.97 kg

DRUGS (2)
  1. CYMBALTA 60MG ELI LILLY [Suspect]
     Indication: DEPRESSION
     Route: 048
     Dates: start: 20120815, end: 20121115
  2. CYMBALTA 60MG ELI LILLY [Suspect]
     Indication: JOINT PAIN
     Route: 048
     Dates: start: 20120815, end: 20121115

REACTIONS (10)
  - Apathy [None]
  - Weight increased [None]
  - Dizziness [None]
  - Disorientation [None]
  - Paraesthesia [None]
  - Eye movement disorder [None]
  - Head titubation [None]
  - Tinnitus [None]
  - Impaired driving ability [None]
  - Feeling abnormal [None]
